FAERS Safety Report 21234716 (Version 2)
Quarter: 2022Q3

REPORT INFORMATION
  Report Type: Spontaneous
  Country: US (occurrence: US)
  Receive Date: 20220820
  Receipt Date: 20220912
  Transmission Date: 20221027
  Serious: Yes (Hospitalization)
  Sender: FDA-Public Use
  Company Number: US-MLMSERVICE-20220727-3697091-1

PATIENT
  Age: 38 Year
  Sex: Female
  Weight: 80 kg

DRUGS (6)
  1. OXYCODONE [Interacting]
     Active Substance: OXYCODONE
     Indication: Cancer pain
     Dosage: 10 MILLIGRAM, EVERY 4 HOURS, AS NEEDED
     Route: 048
  2. OXYCODONE [Interacting]
     Active Substance: OXYCODONE
     Indication: Procedural pain
  3. FLUCONAZOLE [Interacting]
     Active Substance: FLUCONAZOLE
     Indication: Fungal infection
     Dosage: 600 MILLIGRAM, QD
     Route: 042
  4. HYDROMORPHONE [Concomitant]
     Active Substance: HYDROMORPHONE
     Indication: Cancer pain
     Dosage: VIA PATIENT-CONTROLLED ANALGESIA, EVERY 10 MINUTES
     Route: 042
  5. HYDROMORPHONE [Concomitant]
     Active Substance: HYDROMORPHONE
     Indication: Postoperative analgesia
     Dosage: UNK, 2 TO 4 MG OF ORAL HYDROMORPHONE EVERY 4 HOURS AS NEEDED
     Route: 048
  6. ACETAMINOPHEN [Concomitant]
     Active Substance: ACETAMINOPHEN
     Indication: Procedural pain
     Dosage: 650 MILLIGRAM, QID
     Route: 065

REACTIONS (4)
  - Confusional state [Recovered/Resolved]
  - Somnolence [Recovered/Resolved]
  - Drug interaction [Unknown]
  - Myoclonus [Recovered/Resolved]
